FAERS Safety Report 13392605 (Version 2)
Quarter: 2017Q2

REPORT INFORMATION
  Report Type: Report from Study
  Country: US (occurrence: US)
  Receive Date: 20170331
  Receipt Date: 20170412
  Transmission Date: 20170830
  Serious: Yes (Hospitalization, Other)
  Sender: FDA-Public Use
  Company Number: US-SA-2017SA028073

PATIENT
  Age: 51 Year
  Sex: Male

DRUGS (2)
  1. LEMTRADA [Suspect]
     Active Substance: ALEMTUZUMAB
     Indication: MULTIPLE SCLEROSIS
     Route: 041
     Dates: start: 20170130, end: 20170202
  2. LEMTRADA [Suspect]
     Active Substance: ALEMTUZUMAB
     Indication: MULTIPLE SCLEROSIS
     Route: 041
     Dates: start: 20170116, end: 20170116

REACTIONS (5)
  - Road traffic accident [Not Recovered/Not Resolved]
  - Multiple sclerosis relapse [Unknown]
  - Tachycardia [Unknown]
  - Drug monitoring procedure not performed [Unknown]
  - Speech disorder [Unknown]

NARRATIVE: CASE EVENT DATE: 20170116
